FAERS Safety Report 8011768-X (Version None)
Quarter: 2011Q4

REPORT INFORMATION
  Report Type: 
  Country: None (occurrence: None)
  Receive Date: 20111228
  Receipt Date: 20111220
  Transmission Date: 20120403
  Serious: Yes (Other)
  Sender: FDA-Public Use
  Company Number: PHHY2011US110751

PATIENT
  Age: 90 Year
  Sex: Male

DRUGS (4)
  1. CEFTRIAXONE [Suspect]
     Indication: GOUT
  2. PREDNISONE TAB [Concomitant]
     Dosage: UNK UKN, UNK
  3. CEFTRIAXONE [Suspect]
     Indication: ARTHRITIS BACTERIAL
     Dosage: UNK UKN, UNK
     Route: 042
  4. VANCOMYCIN HYCHLORIDE [Concomitant]
     Dosage: UNK UKN, UNK

REACTIONS (7)
  - AUTOIMMUNE HEPATITIS [None]
  - CONFUSIONAL STATE [None]
  - SOMNOLENCE [None]
  - ACUTE HEPATIC FAILURE [None]
  - HEPATIC ENCEPHALOPATHY [None]
  - LETHARGY [None]
  - ASTERIXIS [None]
